FAERS Safety Report 7258946-5 (Version None)
Quarter: 2011Q1

REPORT INFORMATION
  Report Type: 
  Country: None (occurrence: None)
  Receive Date: 20110129
  Receipt Date: 20100727
  Transmission Date: 20110831
  Serious: Yes (Other)
  Sender: FDA-Public Use
  Company Number: US-ABBOTT-10P-163-0652914-00

PATIENT
  Sex: Female
  Weight: 79.45 kg

DRUGS (11)
  1. CRESTOR [Concomitant]
     Indication: BLOOD CHOLESTEROL
     Route: 048
  2. ASCORBIC ACID [Concomitant]
     Indication: VITAMIN SUPPLEMENTATION
     Route: 048
  3. TRAZODONE [Concomitant]
     Indication: INSOMNIA
     Dosage: 0.5  TABLET DAILY
     Route: 048
  4. NAPROXEN [Concomitant]
     Indication: ARTHRALGIA
     Route: 048
  5. CALCIUM [Concomitant]
     Indication: MINERAL SUPPLEMENTATION
     Route: 048
  6. DEPO-PROVERA [Concomitant]
     Indication: CONTRACEPTION
     Route: 050
  7. VITAMIN D [Concomitant]
     Indication: VITAMIN SUPPLEMENTATION
     Route: 048
  8. HUMIRA [Suspect]
     Indication: RHEUMATOID ARTHRITIS
     Route: 058
     Dates: start: 20070101
  9. BLACK COHASH [Concomitant]
     Indication: NIGHT SWEATS
     Route: 048
  10. ZOLOFT [Concomitant]
     Indication: ANTIDEPRESSANT THERAPY
     Route: 048
  11. PRILOSEC [Concomitant]
     Indication: DYSPEPSIA
     Route: 048

REACTIONS (5)
  - UPPER LIMB FRACTURE [None]
  - FIBULA FRACTURE [None]
  - FALL [None]
  - TIBIA FRACTURE [None]
  - OSTEOPENIA [None]
